FAERS Safety Report 19873606 (Version 1)
Quarter: 2021Q3

REPORT INFORMATION
  Report Type: Spontaneous
  Country: FR (occurrence: FR)
  Receive Date: 20210922
  Receipt Date: 20210922
  Transmission Date: 20211014
  Serious: Yes (Death, Life-Threatening, Other)
  Sender: FDA-Public Use
  Company Number: FR-MYLANLABS-2021M1063975

PATIENT
  Age: 55 Year
  Sex: Male

DRUGS (2)
  1. OMNIPAQUE [Interacting]
     Active Substance: IOHEXOL
     Indication: EMBOLIC STROKE
     Dosage: 900 MILLILITER, TOTAL
     Route: 041
     Dates: start: 20210306, end: 20210308
  2. METFORMIN [Suspect]
     Active Substance: METFORMIN HYDROCHLORIDE
     Indication: TYPE 2 DIABETES MELLITUS
     Dosage: 1000 MILLIGRAM, Q3D
     Route: 048
     Dates: start: 2019, end: 20210308

REACTIONS (2)
  - Acute kidney injury [Fatal]
  - Metabolic acidosis [Recovered/Resolved]

NARRATIVE: CASE EVENT DATE: 20210308
